FAERS Safety Report 9186490 (Version 1)
Quarter: 2013Q1

REPORT INFORMATION
  Report Type: Spontaneous
  Country: US (occurrence: US)
  Receive Date: 20130325
  Receipt Date: 20130325
  Transmission Date: 20140127
  Serious: Yes (Hospitalization)
  Sender: FDA-Public Use
  Company Number: US-BAYER-2013-035457

PATIENT
  Age: 26 Year
  Sex: Female

DRUGS (7)
  1. YASMIN [Suspect]
  2. METHYLPREDNISOLON [Concomitant]
     Dosage: 4 MG, TAKE AS DIRECT
  3. DOSEPAK [Concomitant]
     Dosage: TAKE AS DIRECT
  4. ACETAMINOPHEN W/CODEINE [Concomitant]
     Dosage: TAKE 1TO2 TABLETS EVERY 6 HOURS AS NEEDE
     Route: 048
  5. TYLENOL #3 [Concomitant]
  6. REQUIP [Concomitant]
  7. RECLIPSEN [Concomitant]

REACTIONS (2)
  - Deep vein thrombosis [None]
  - Deep vein thrombosis [None]
